FAERS Safety Report 4791737-3 (Version None)
Quarter: 2005Q4

REPORT INFORMATION
  Report Type: 
  Country: None (occurrence: None)
  Receive Date: 20051007
  Receipt Date: 20050909
  Transmission Date: 20060501
  Serious: Yes (Hospitalization, Other)
  Sender: FDA-Public Use
  Company Number: PHBS2005JP13283

PATIENT
  Age: 85 Year
  Sex: Female
  Weight: 41 kg

DRUGS (8)
  1. VOLTAREN [Suspect]
     Indication: BACK INJURY
     Dosage: 25 MG, ONCE/SINGLE
     Route: 054
     Dates: start: 20050908, end: 20050908
  2. LOXONIN [Concomitant]
     Indication: RHEUMATOID ARTHRITIS
     Dosage: 180 MG, UNK
     Route: 048
  3. ADALAT [Concomitant]
     Indication: HYPERTENSION
     Dosage: 40 MG, UNK
     Route: 048
  4. COVERSYL [Concomitant]
     Indication: HYPERTENSION
     Dosage: 8 MG, UNK
     Route: 048
  5. AMOBAN [Concomitant]
     Indication: INSOMNIA
     Dosage: 7.5 MG, UNK
     Route: 048
  6. ORCL [Concomitant]
     Indication: RHEUMATOID ARTHRITIS
     Dosage: 300 MG, UNK
     Route: 048
  7. INTEBAN [Concomitant]
     Indication: RHEUMATOID ARTHRITIS
     Route: 061
  8. KETOPROFEN [Concomitant]
     Indication: RHEUMATOID ARTHRITIS
     Route: 061

REACTIONS (6)
  - BLOOD PRESSURE INCREASED [None]
  - DEPRESSED LEVEL OF CONSCIOUSNESS [None]
  - HEART RATE INCREASED [None]
  - HYPOTENSION [None]
  - MALAISE [None]
  - SHOCK [None]
